FAERS Safety Report 5420696-5 (Version None)
Quarter: 2007Q3

REPORT INFORMATION
  Report Type: 
  Country: None (occurrence: None)
  Receive Date: 20070821
  Receipt Date: 20070810
  Transmission Date: 20080115
  Serious: Yes (Other)
  Sender: FDA-Public Use
  Company Number: GB-ALLERGAN-0708954US

PATIENT
  Sex: Female

DRUGS (3)
  1. BOTOX [Suspect]
     Indication: DRUG USE FOR UNKNOWN INDICATION
     Dosage: UNK, SINGLE
     Route: 030
     Dates: start: 20070802, end: 20070802
  2. LIDODERM PLASTER [Concomitant]
  3. TRANSCUTANEOUS ELECTRICAL NERVE STIMULATION [Concomitant]

REACTIONS (3)
  - HEART RATE INCREASED [None]
  - HYPOAESTHESIA [None]
  - PRESYNCOPE [None]
